FAERS Safety Report 5015893-7 (Version None)
Quarter: 2006Q2

REPORT INFORMATION
  Report Type: 
  Country: None (occurrence: None)
  Receive Date: 20060525
  Receipt Date: 20060504
  Transmission Date: 20061013
  Serious: Yes (Death)
  Sender: FDA-Public Use
  Company Number: MX200604002931

PATIENT
  Sex: Male

DRUGS (1)
  1. CIALIS [Suspect]
     Dosage: 2 TABLETS, ORAL
     Route: 048

REACTIONS (2)
  - DRUG INEFFECTIVE [None]
  - INTENTIONAL OVERDOSE [None]
